FAERS Safety Report 7386814-7 (Version None)
Quarter: 2011Q1

REPORT INFORMATION
  Report Type: 
  Country: None (occurrence: None)
  Receive Date: 20110331
  Receipt Date: 20110329
  Transmission Date: 20110831
  Serious: Yes (Hospitalization)
  Sender: FDA-Public Use
  Company Number: CHPA2011GB04593

PATIENT
  Age: 27 Year
  Sex: Female

DRUGS (4)
  1. IBUPROFEN [Suspect]
     Indication: MIGRAINE
     Dosage: ONE DOSAGE/INTERVAL
     Route: 048
     Dates: end: 20060208
  2. AMITRIPTYLINE [Concomitant]
     Dosage: 50 MG (1 DOSAGE/INTERVAL)
     Route: 048
  3. BETAHISTINE [Concomitant]
     Dosage: 16 MG (3 DOSAGES/1 DAY)
     Route: 048
  4. CYCLIZINE [Concomitant]
     Dosage: 50 MG (3 DOSAGES/1 INTERVAL)
     Route: 048

REACTIONS (9)
  - WEIGHT DECREASED [None]
  - VOMITING [None]
  - DIZZINESS [None]
  - ABDOMINAL PAIN UPPER [None]
  - RECTAL HAEMORRHAGE [None]
  - ABASIA [None]
  - HAEMATEMESIS [None]
  - DECREASED APPETITE [None]
  - CONSTIPATION [None]
